FAERS Safety Report 9352153 (Version 2)
Quarter: 2013Q3

REPORT INFORMATION
  Report Type: Spontaneous
  Country: US (occurrence: US)
  Receive Date: 20130617
  Receipt Date: 20130911
  Transmission Date: 20140515
  Serious: No
  Sender: FDA-Public Use
  Company Number: US-009507513-1305USA014990

PATIENT
  Age: 67 Year
  Sex: Female

DRUGS (8)
  1. INTRONA [Suspect]
     Indication: MYCOSIS FUNGOIDES
     Dosage: 1.5 MILLION IU, TIW, CUT THE DOSE IN HALF
     Dates: start: 20130422, end: 201304
  2. INTRONA [Suspect]
     Dosage: 3 MILLION IU, TIW, RESUME FULL DOSE AFTER TWO DOSES
     Dates: start: 201304
  3. PRINIVIL [Concomitant]
  4. METFORMIN [Concomitant]
  5. HYDROCHLOROTHIAZIDE [Concomitant]
  6. AMLODIPINE [Concomitant]
  7. TRAMADOL HYDROCHLORIDE [Concomitant]
  8. LIPITOR [Concomitant]

REACTIONS (6)
  - Pain [Unknown]
  - Influenza like illness [Recovered/Resolved]
  - Pyrexia [Recovered/Resolved]
  - Abdominal discomfort [Recovered/Resolved]
  - Drug dose omission [Unknown]
  - Chills [Recovered/Resolved]
